FAERS Safety Report 11718106 (Version 3)
Quarter: 2016Q2

REPORT INFORMATION
  Report Type: Spontaneous
  Country: SE (occurrence: SE)
  Receive Date: 20151110
  Receipt Date: 20160621
  Transmission Date: 20160815
  Serious: Yes (Life-Threatening, Hospitalization)
  Sender: FDA-Public Use
  Company Number: SE-SA-2015SA178367

PATIENT
  Age: 37 Year
  Sex: Female

DRUGS (12)
  1. DOLCONTIN [Concomitant]
     Active Substance: MORPHINE
  2. PROPAVAN [Concomitant]
     Active Substance: PROPIOMAZINE
  3. CYSTEINE [Concomitant]
     Active Substance: CYSTEINE
  4. KALCIPOS [Concomitant]
     Active Substance: CALCIUM CARBONATE
  5. PREDNISOLONE. [Concomitant]
     Active Substance: PREDNISOLONE
  6. SAROTEN [Concomitant]
     Active Substance: AMITRIPTYLINE
  7. OMEPRAZOLE. [Concomitant]
     Active Substance: OMEPRAZOLE
  8. BEHEPAN [Concomitant]
     Active Substance: HYDROXOCOBALAMIN
  9. PULMICORT TURBUHALER [Concomitant]
     Active Substance: BUDESONIDE
  10. OXIS [Concomitant]
     Active Substance: FORMOTEROL FUMARATE
  11. ARAVA [Suspect]
     Active Substance: LEFLUNOMIDE
     Indication: PSORIATIC ARTHROPATHY
     Route: 048
     Dates: start: 20150109, end: 20150826
  12. ALVEDON [Concomitant]
     Active Substance: ACETAMINOPHEN

REACTIONS (8)
  - Sinusitis [Recovering/Resolving]
  - Haemoptysis [Recovering/Resolving]
  - Computerised tomogram abnormal [Recovering/Resolving]
  - Interstitial lung disease [Recovering/Resolving]
  - Cardiac failure [Recovering/Resolving]
  - Pulmonary fibrosis [Unknown]
  - Dyspnoea [Recovering/Resolving]
  - Chest pain [Recovering/Resolving]

NARRATIVE: CASE EVENT DATE: 20150825
